FAERS Safety Report 4420926-2 (Version None)
Quarter: 2004Q3

REPORT INFORMATION
  Report Type: 
  Country: None (occurrence: None)
  Receive Date: 20040809
  Receipt Date: 20040727
  Transmission Date: 20050211
  Serious: Yes (Other)
  Sender: FDA-Public Use
  Company Number: US-JNJFOC-20040708182

PATIENT
  Age: 30 Year
  Sex: Female

DRUGS (4)
  1. INFLIXIMAB [Suspect]
     Indication: TAKAYASU'S ARTERITIS
     Route: 042
  2. METHOTREXATE [Concomitant]
  3. PREDNISONE TAB [Concomitant]
     Dosage: LOWEST DOSE AFTER INFLIXIMAB
  4. PREDNISONE TAB [Concomitant]
     Dosage: LOWEST DOSE BEFORE INFLIXIMAB

REACTIONS (1)
  - HISTOPLASMOSIS DISSEMINATED [None]
